FAERS Safety Report 4595358-7 (Version None)
Quarter: 2005Q1

REPORT INFORMATION
  Report Type: 
  Country: None (occurrence: None)
  Receive Date: 20050223
  Receipt Date: 20050211
  Transmission Date: 20050727
  Serious: Yes (Disabling)
  Sender: FDA-Public Use
  Company Number: 2004SE06639

PATIENT
  Age: 51 Year
  Sex: Female

DRUGS (2)
  1. NEXIUM [Suspect]
     Dates: start: 20040427, end: 20040520
  2. CITALOPRAM HYDROBROMIDE [Suspect]
     Indication: DEPRESSION
     Dosage: 20 MG DAILY PO
     Route: 048
     Dates: start: 20040514, end: 20041028

REACTIONS (5)
  - CHILLS [None]
  - CONVERSION DISORDER [None]
  - DRUG INTERACTION [None]
  - FATIGUE [None]
  - NAUSEA [None]
